FAERS Safety Report 6718308-3 (Version None)
Quarter: 2010Q2

REPORT INFORMATION
  Report Type: 
  Country: None (occurrence: None)
  Receive Date: 20100510
  Receipt Date: 20100430
  Transmission Date: 20101027
  Serious: Yes (Hospitalization)
  Sender: FDA-Public Use
  Company Number: DE-TEVA-231542ISR

PATIENT
  Sex: Female
  Weight: 113 kg

DRUGS (1)
  1. GEMCITABINE HCL [Suspect]
     Indication: BILE DUCT CANCER
     Route: 042
     Dates: start: 20100209, end: 20100414

REACTIONS (1)
  - BACK PAIN [None]
